FAERS Safety Report 4548413-1 (Version None)
Quarter: 2005Q1

REPORT INFORMATION
  Report Type: 
  Country: None (occurrence: None)
  Receive Date: 20050106
  Receipt Date: 20050106
  Transmission Date: 20050727
  Serious: Yes (Death)
  Sender: FDA-Public Use
  Company Number: None

PATIENT
  Sex: Male
  Weight: 103 kg

DRUGS (15)
  1. GEMZAR [Suspect]
     Indication: PANCREATIC CARCINOMA
     Dosage: 1500MG/M2  IV WEEKLY X3 FOLLOWED BY 1WK OF REST
     Route: 042
     Dates: start: 20040831, end: 20041213
  2. MORPHINE SULFATE [Concomitant]
  3. MEGACE [Concomitant]
  4. LASIX [Concomitant]
  5. LEVSIN PB [Concomitant]
  6. MYLICON [Concomitant]
  7. OXYCONTIN [Concomitant]
  8. PREVACID [Concomitant]
  9. TOPROL-XL [Concomitant]
  10. COUMADIN [Concomitant]
  11. RESTORIL [Concomitant]
  12. ATIVAN [Concomitant]
  13. CEPHALEXIN [Concomitant]
  14. OXYCODONE HCL [Concomitant]
  15. PHENERGAN [Concomitant]

REACTIONS (3)
  - DEEP VEIN THROMBOSIS [None]
  - RENAL FAILURE ACUTE [None]
  - SEPSIS [None]
